FAERS Safety Report 20848257 (Version 5)
Quarter: 2023Q1

REPORT INFORMATION
  Report Type: Spontaneous
  Country: US (occurrence: GB)
  Receive Date: 20220519
  Receipt Date: 20230306
  Transmission Date: 20230418
  Serious: Yes (Death, Other)
  Sender: FDA-Public Use
  Company Number: US-JNJFOC-20220520678

PATIENT

DRUGS (2)
  1. IMBRUVICA [Suspect]
     Active Substance: IBRUTINIB
     Indication: Chronic lymphocytic leukaemia
     Route: 048
  2. ZANUBRUTINIB [Suspect]
     Active Substance: ZANUBRUTINIB
     Indication: Chronic lymphocytic leukaemia
     Route: 065

REACTIONS (36)
  - Multiple organ dysfunction syndrome [Fatal]
  - Haemorrhage [Unknown]
  - Atrial fibrillation [Unknown]
  - Neutropenia [Unknown]
  - Atrial flutter [Unknown]
  - Infection [Unknown]
  - Neutrophil count decreased [Unknown]
  - Palpitations [Unknown]
  - Skin cancer [Unknown]
  - Arthralgia [Unknown]
  - Hypertension [Unknown]
  - Ventricular fibrillation [Unknown]
  - Central nervous system haemorrhage [Fatal]
  - Upper respiratory tract infection [Unknown]
  - Influenza [Fatal]
  - Syncope [Unknown]
  - Anaemia [Unknown]
  - Febrile neutropenia [Unknown]
  - Urinary tract infection [Unknown]
  - Toxicity to various agents [Unknown]
  - Myocardial infarction [Fatal]
  - Pneumonia [Fatal]
  - Opportunistic infection [Unknown]
  - Blood pressure increased [Unknown]
  - Muscle spasms [Unknown]
  - Contusion [Unknown]
  - Diarrhoea [Unknown]
  - Cerebral infarction [Fatal]
  - Respiratory failure [Fatal]
  - Second primary malignancy [Unknown]
  - Cough [Unknown]
  - Thrombocytopenia [Unknown]
  - Septic shock [Fatal]
  - COVID-19 pneumonia [Fatal]
  - Lymphocytosis [Unknown]
  - Cardiac arrest [Fatal]
